FAERS Safety Report 13881432 (Version 1)
Quarter: 2017Q3

REPORT INFORMATION
  Report Type: Spontaneous
  Country: US (occurrence: US)
  Receive Date: 20170818
  Receipt Date: 20170818
  Transmission Date: 20171127
  Serious: No
  Sender: FDA-Public Use
  Company Number: US-PFIZER INC-2017355193

PATIENT
  Age: 47 Year
  Sex: Female
  Weight: 83 kg

DRUGS (10)
  1. SUTENT [Suspect]
     Active Substance: SUNITINIB MALATE
     Indication: RENAL CANCER METASTATIC
  2. SUTENT [Suspect]
     Active Substance: SUNITINIB MALATE
     Indication: RENAL CANCER STAGE IV
     Dosage: 50 MG, UNK [2 WEEKS ON/1 WEEK OFF]
     Dates: start: 20170731
  3. TYLENOL [Concomitant]
     Active Substance: ACETAMINOPHEN
     Dosage: UNK
  4. PRILOSEC [Concomitant]
     Active Substance: OMEPRAZOLE MAGNESIUM
     Dosage: UNK
  5. DULCOLAX NOS [Concomitant]
     Active Substance: BISACODYL OR DOCUSATE SODIUM
     Dosage: UNK
  6. DESONIDE. [Concomitant]
     Active Substance: DESONIDE
     Dosage: UNK UNK, AS NEEDED
  7. SENNA [Concomitant]
     Active Substance: SENNA LEAF\SENNOSIDES\SENNOSIDES A AND B
     Dosage: UNK
  8. LEVOTHYROXINE. [Concomitant]
     Active Substance: LEVOTHYROXINE
     Dosage: UNK
  9. ALBUTEROL. [Concomitant]
     Active Substance: ALBUTEROL
     Dosage: UNK
  10. TRAMADOL. [Concomitant]
     Active Substance: TRAMADOL
     Dosage: UNK UNK, AS NEEDED

REACTIONS (7)
  - Cough [Recovering/Resolving]
  - Headache [Unknown]
  - Nausea [Unknown]
  - Dyspepsia [Recovering/Resolving]
  - Pyrexia [Unknown]
  - Eating disorder [Unknown]
  - Stomatitis [Unknown]
